FAERS Safety Report 5743916-6 (Version None)
Quarter: 2008Q2

REPORT INFORMATION
  Report Type: 
  Country: None (occurrence: None)
  Receive Date: 20080520
  Receipt Date: 20080513
  Transmission Date: 20081010
  Serious: Yes (Other)
  Sender: FDA-Public Use
  Company Number: DE-JNJFOC-20080502806

PATIENT
  Age: 20 Year
  Sex: Male

DRUGS (4)
  1. RISPERDAL [Suspect]
     Indication: DRUG USE FOR UNKNOWN INDICATION
     Route: 048
  2. AKINETON [Suspect]
     Indication: DRUG USE FOR UNKNOWN INDICATION
     Route: 048
  3. LORAZEPAM [Suspect]
     Indication: DRUG USE FOR UNKNOWN INDICATION
     Route: 048
  4. TAXILAN [Suspect]
     Indication: DRUG USE FOR UNKNOWN INDICATION
     Route: 048

REACTIONS (5)
  - COMA [None]
  - INTENTIONAL OVERDOSE [None]
  - MUSCLE SPASMS [None]
  - MYDRIASIS [None]
  - SUICIDE ATTEMPT [None]
